FAERS Safety Report 4944433-3 (Version None)
Quarter: 2006Q1

REPORT INFORMATION
  Report Type: 
  Country: None (occurrence: None)
  Receive Date: 20060315
  Receipt Date: 20060307
  Transmission Date: 20060701
  Serious: Yes (Hospitalization, Disabling)
  Sender: FDA-Public Use
  Company Number: AU-MERCK-0603AUS00045

PATIENT
  Age: 60 Year
  Sex: Female
  Weight: 45 kg

DRUGS (2)
  1. ZOCOR [Suspect]
     Indication: ACUTE MYOCARDIAL INFARCTION
     Route: 048
     Dates: end: 20050818
  2. AMIODARONE HYDROCHLORIDE [Suspect]
     Indication: CARDIAC DISORDER
     Route: 048
     Dates: end: 20050818

REACTIONS (3)
  - MUSCULAR WEAKNESS [None]
  - PAIN [None]
  - RHABDOMYOLYSIS [None]
